FAERS Safety Report 8998019 (Version 1)
Quarter: 2013Q1

REPORT INFORMATION
  Report Type: Report from Study
  Country: IN (occurrence: IN)
  Receive Date: 20130105
  Receipt Date: 20130105
  Transmission Date: 20140127
  Serious: Yes (Death)
  Sender: FDA-Public Use
  Company Number: IN-ACCORD-015816

PATIENT
  Sex: 0

DRUGS (3)
  1. PACLITAXEL [Suspect]
     Indication: PENILE CANCER
     Dosage: OVER 3 HOUR, FOUR CYCLES WERE PLANNED AT AN INTERVAL OF 21 DAYS
  2. CISPLATIN [Suspect]
     Indication: PENILE CANCER
     Dosage: OVER 1 HOUR. FOUR CYCLES WERE PLANNED AT AN INTERVAL OF 21 DAYS
  3. CARBOPLATIN [Suspect]
     Indication: PENILE CANCER

REACTIONS (3)
  - Diarrhoea [Fatal]
  - Febrile neutropenia [Fatal]
  - Off label use [Unknown]
